FAERS Safety Report 6105388-1 (Version None)
Quarter: 2009Q1

REPORT INFORMATION
  Report Type: 
  Country: None (occurrence: None)
  Receive Date: 20090306
  Receipt Date: 20090224
  Transmission Date: 20090719
  Serious: Yes (Other)
  Sender: FDA-Public Use
  Company Number: ZA-PFIZER INC-2009175761

PATIENT

DRUGS (5)
  1. LYRICA [Suspect]
     Indication: FIBROMYALGIA
     Route: 048
     Dates: start: 20090101
  2. MOLIPAXIN [Suspect]
     Dosage: UNIT DOSE: UNKN; FREQUENCY: UNKN, UNKN;
     Route: 048
  3. IMOVANE [Concomitant]
  4. THYROID TAB [Concomitant]
  5. CASODEX [Concomitant]

REACTIONS (1)
  - DEAFNESS UNILATERAL [None]
